FAERS Safety Report 4318475-5 (Version None)
Quarter: 2004Q1

REPORT INFORMATION
  Report Type: 
  Country: None (occurrence: None)
  Receive Date: 20040316
  Receipt Date: 20040316
  Transmission Date: 20041129
  Serious: Yes (Other)
  Sender: FDA-Public Use
  Company Number: None

PATIENT
  Sex: Male
  Weight: 63.5036 kg

DRUGS (2)
  1. RITALIN [Suspect]
     Indication: ATTENTION DEFICIT/HYPERACTIVITY DISORDER
     Dosage: TWO AM, NOON , 3 PM PO
     Route: 048
     Dates: start: 20040315, end: 20040916
  2. RITALIN [Suspect]
     Indication: OPPOSITIONAL DEFIANT DISORDER
     Dosage: TWO AM, NOON , 3 PM PO
     Route: 048
     Dates: start: 20040315, end: 20040916

REACTIONS (2)
  - DRUG RESISTANCE [None]
  - PHARMACEUTICAL PRODUCT COMPLAINT [None]
